FAERS Safety Report 11420870 (Version 2)
Quarter: 2015Q3

REPORT INFORMATION
  Report Type: Report from Study
  Country: US (occurrence: US)
  Receive Date: 20150826
  Receipt Date: 20150923
  Transmission Date: 20151125
  Serious: Yes (Hospitalization)
  Sender: FDA-Public Use
  Company Number: US-GILEAD-2015-0166713

PATIENT
  Age: 84 Year
  Sex: Male

DRUGS (3)
  1. IDELALISIB [Suspect]
     Active Substance: IDELALISIB
     Dosage: 150 MG, QD
     Route: 048
     Dates: start: 201508
  2. LASIX [Concomitant]
     Active Substance: FUROSEMIDE
  3. IDELALISIB [Suspect]
     Active Substance: IDELALISIB
     Indication: B-CELL LYMPHOMA
     Dosage: 150 MG, BID
     Route: 048
     Dates: start: 201507

REACTIONS (3)
  - Fluid retention [Unknown]
  - Pleural effusion [Unknown]
  - Neck mass [Unknown]

NARRATIVE: CASE EVENT DATE: 20150723
